FAERS Safety Report 15855350 (Version 2)
Quarter: 2019Q1

REPORT INFORMATION
  Report Type: Spontaneous
  Country: DE (occurrence: DE)
  Receive Date: 20190122
  Receipt Date: 20190215
  Transmission Date: 20190417
  Serious: Yes (Other)
  Sender: FDA-Public Use
  Company Number: DE-ALLERGAN-1857847US

PATIENT
  Age: 79 Year
  Sex: Female

DRUGS (5)
  1. CICLOSPORIN A [Concomitant]
     Active Substance: CYCLOSPORINE
     Indication: POSTOPERATIVE CARE
  2. HUMAN ALBUMIN [Concomitant]
     Active Substance: ALBUMIN HUMAN
     Indication: POSTOPERATIVE CARE
     Dosage: UNK UNK, Q1HR
     Route: 047
  3. DORZOLAMIDE/TIMOLOL [Concomitant]
     Active Substance: DORZOLAMIDE\TIMOLOL
     Indication: INTRAOCULAR PRESSURE TEST ABNORMAL
     Dosage: UNK
     Route: 047
  4. OFLOXACIN UNK [Suspect]
     Active Substance: OFLOXACIN
     Indication: POSTOPERATIVE CARE
     Dosage: UNK UNK, QID
     Route: 047
  5. DEXAMETHASONE DIHYDROGEN PHOSPHATE DISODIUM [Concomitant]
     Indication: POSTOPERATIVE CARE
     Dosage: SIX TIMES A DAY

REACTIONS (4)
  - Keratolysis exfoliativa acquired [Unknown]
  - Corneal erosion [Unknown]
  - Corneal perforation [Unknown]
  - Impaired healing [Unknown]
